FAERS Safety Report 10018905 (Version 2)
Quarter: 2014Q2

REPORT INFORMATION
  Report Type: Report from Study
  Country: US (occurrence: US)
  Receive Date: 20140318
  Receipt Date: 20140516
  Transmission Date: 20141212
  Serious: Yes (Hospitalization, Other)
  Sender: FDA-Public Use
  Company Number: US-ABBVIE-14P-163-1211164-00

PATIENT
  Age: 58 Year
  Sex: Female

DRUGS (21)
  1. HUMIRA [Suspect]
     Indication: CROHN^S DISEASE
     Dates: start: 20130906, end: 201310
  2. HUMIRA [Suspect]
     Dates: start: 201310
  3. PREDNISONE [Concomitant]
     Indication: CROHN^S DISEASE
  4. PREDNISONE [Concomitant]
  5. PREDNISONE [Concomitant]
  6. LABETALOL [Concomitant]
     Indication: HYPERTENSION
  7. CYMBALTA [Concomitant]
     Indication: DEPRESSION
  8. CYMBALTA [Concomitant]
     Indication: PAIN
  9. FLORASTOR [Concomitant]
     Indication: PROPHYLAXIS
  10. PRILOSEC [Concomitant]
     Indication: DYSPEPSIA
  11. FUROSEMIDE [Concomitant]
     Indication: FLUID RETENTION
  12. K-DUR [Concomitant]
     Indication: PRODUCT USED FOR UNKNOWN INDICATION
  13. KLONOPIN [Concomitant]
     Indication: ANXIETY
  14. AMBIEN [Concomitant]
     Indication: INSOMNIA
     Dosage: HOUR OF SLEEP
  15. AMLODIPINE [Concomitant]
     Indication: HYPERTENSION
  16. VITAMIN B [Concomitant]
     Indication: PRODUCT USED FOR UNKNOWN INDICATION
  17. VITAMIN D [Concomitant]
     Indication: PRODUCT USED FOR UNKNOWN INDICATION
  18. CO Q10 [Concomitant]
     Indication: PRODUCT USED FOR UNKNOWN INDICATION
  19. OMEGA 3 [Concomitant]
     Indication: PRODUCT USED FOR UNKNOWN INDICATION
  20. ALPRAZOLAM [Concomitant]
     Indication: PRODUCT USED FOR UNKNOWN INDICATION
     Dosage: 1 TAB Q8H PRN
  21. ULTRAM [Concomitant]
     Indication: PRODUCT USED FOR UNKNOWN INDICATION

REACTIONS (13)
  - Renal neoplasm [Not Recovered/Not Resolved]
  - Procedural haemorrhage [Not Recovered/Not Resolved]
  - Abdominal pain [Not Recovered/Not Resolved]
  - Drug ineffective [Recovering/Resolving]
  - Abdominal distension [Not Recovered/Not Resolved]
  - Haematoma [Not Recovered/Not Resolved]
  - Pain [Not Recovered/Not Resolved]
  - Waist circumference increased [Not Recovered/Not Resolved]
  - Pain [Not Recovered/Not Resolved]
  - Gait disturbance [Not Recovered/Not Resolved]
  - Injection site haemorrhage [Not Recovered/Not Resolved]
  - Scratch [Not Recovered/Not Resolved]
  - Skin haemorrhage [Not Recovered/Not Resolved]
